FAERS Safety Report 9621622 (Version 3)
Quarter: 2013Q4

REPORT INFORMATION
  Report Type: Spontaneous
  Country: BE (occurrence: BE)
  Receive Date: 20131015
  Receipt Date: 20131030
  Transmission Date: 20140711
  Serious: Yes (Other)
  Sender: FDA-Public Use
  Company Number: BE-009507513-1308BEL013542

PATIENT
  Age: 28 Year
  Sex: Female

DRUGS (1)
  1. IMPLANON [Suspect]
     Dosage: UNK
     Route: 059
     Dates: start: 2010, end: 20130923

REACTIONS (3)
  - General anaesthesia [Unknown]
  - Device deployment issue [Recovered/Resolved]
  - Medical device complication [Recovered/Resolved]
